FAERS Safety Report 6505397-4 (Version None)
Quarter: 2009Q4

REPORT INFORMATION
  Report Type: 
  Country: None (occurrence: None)
  Receive Date: 20091217
  Receipt Date: 20091217
  Transmission Date: 20100525
  Serious: No
  Sender: FDA-Public Use
  Company Number: None

PATIENT
  Age: 65 Year
  Sex: Female
  Weight: 97.5234 kg

DRUGS (4)
  1. FEMARA [Suspect]
     Indication: ADJUVANT THERAPY
     Dosage: 1 DAILY PO
     Route: 048
     Dates: start: 20090307, end: 20090331
  2. FEMARA [Suspect]
     Indication: BREAST CANCER
     Dosage: 1 DAILY PO
     Route: 048
     Dates: start: 20090307, end: 20090331
  3. AROMASIN [Suspect]
     Indication: ADJUVANT THERAPY
     Dosage: 1 DAILY PO
     Route: 048
     Dates: start: 20090416, end: 20091209
  4. AROMASIN [Suspect]
     Indication: BREAST CANCER
     Dosage: 1 DAILY PO
     Route: 048
     Dates: start: 20090416, end: 20091209

REACTIONS (10)
  - ARTHRALGIA [None]
  - ARTHRITIS [None]
  - CONDITION AGGRAVATED [None]
  - DEPRESSION [None]
  - FATIGUE [None]
  - FEELING ABNORMAL [None]
  - HOT FLUSH [None]
  - INSOMNIA [None]
  - LETHARGY [None]
  - PAIN IN EXTREMITY [None]
